FAERS Safety Report 20540047 (Version 1)
Quarter: 2022Q1

REPORT INFORMATION
  Report Type: Spontaneous
  Country: IT (occurrence: IT)
  Receive Date: 20220302
  Receipt Date: 20220302
  Transmission Date: 20220423
  Serious: Yes (Life-Threatening, Hospitalization, Other)
  Sender: FDA-Public Use
  Company Number: IT-MLMSERVICE-20211108-3210724-1

PATIENT
  Age: 71 Year
  Sex: Male

DRUGS (8)
  1. RISPERDAL CONSTA [Suspect]
     Active Substance: RISPERIDONE
     Indication: Bipolar disorder
     Dosage: LONG-ACTING INJECTABLE
     Route: 065
     Dates: start: 201910, end: 2020
  2. RISPERDAL CONSTA [Suspect]
     Active Substance: RISPERIDONE
  3. RISPERDAL CONSTA [Suspect]
     Active Substance: RISPERIDONE
  4. RISPERDAL CONSTA [Suspect]
     Active Substance: RISPERIDONE
  5. LITHIUM CARBONATE [Suspect]
     Active Substance: LITHIUM CARBONATE
     Indication: Bipolar disorder
     Route: 048
     Dates: start: 201909, end: 202012
  6. PREDNISONE [Concomitant]
     Active Substance: PREDNISONE
     Indication: Pemphigoid
     Route: 065
     Dates: start: 202001
  7. AZATHIOPRINE [Concomitant]
     Active Substance: AZATHIOPRINE
     Indication: Pemphigoid
     Route: 065
     Dates: start: 202001
  8. OXCARBAZEPINE [Concomitant]
     Active Substance: OXCARBAZEPINE
     Indication: Bipolar disorder
     Route: 065
     Dates: start: 202001

REACTIONS (11)
  - Coma [Recovered/Resolved]
  - Altered state of consciousness [Recovered/Resolved]
  - Leukopenia [Unknown]
  - Pemphigoid [Unknown]
  - Hypothermia [Recovered/Resolved]
  - Glomerular filtration rate decreased [Unknown]
  - Blood urea increased [Unknown]
  - Hypotension [Recovered/Resolved]
  - Lymphocytosis [Unknown]
  - Streptococcal infection [Unknown]
  - Hyponatraemia [Unknown]

NARRATIVE: CASE EVENT DATE: 20200101
